FAERS Safety Report 9493423 (Version 3)
Quarter: 2013Q3

REPORT INFORMATION
  Report Type: Spontaneous
  Country: FR (occurrence: FR)
  Receive Date: 20130902
  Receipt Date: 20130909
  Transmission Date: 20140515
  Serious: Yes (Hospitalization)
  Sender: FDA-Public Use
  Company Number: FR-PFIZER INC-2013251230

PATIENT
  Age: 80 Year
  Sex: Male

DRUGS (5)
  1. CORDARONE [Suspect]
     Indication: ATRIAL FIBRILLATION
     Dosage: 200 MG, DAILY
     Route: 048
     Dates: start: 2008, end: 20130525
  2. OMEPRAZOLE [Suspect]
     Dosage: 20 MG, DAILY
     Route: 048
     Dates: start: 2012, end: 20130525
  3. KARDEGIC [Suspect]
     Indication: MITRAL VALVE DISEASE
     Dosage: 75 MG, DAILY
     Route: 048
     Dates: start: 2008, end: 20130525
  4. STRUCTOFLEX [Suspect]
     Indication: ARTHRITIS
     Dosage: 625 MG, DAILY
     Route: 048
     Dates: end: 20130525
  5. SINEMET [Concomitant]
     Dosage: UNK

REACTIONS (1)
  - Hyponatraemia [Recovered/Resolved]
